FAERS Safety Report 23940261 (Version 1)
Quarter: 2024Q2

REPORT INFORMATION
  Report Type: Spontaneous
  Country: DE (occurrence: DE)
  Receive Date: 20240605
  Receipt Date: 20240605
  Transmission Date: 20240716
  Serious: Yes (Other)
  Sender: FDA-Public Use
  Company Number: DE-DCGMA-24203360

PATIENT
  Age: 36 Year
  Sex: Female
  Weight: 67 kg

DRUGS (3)
  1. PROLIA [Suspect]
     Active Substance: DENOSUMAB
     Indication: Product used for unknown indication
     Dosage: 120 MILLIGRAM
     Route: 058
     Dates: start: 202402
  2. ENHERTU [Concomitant]
     Active Substance: FAM-TRASTUZUMAB DERUXTECAN-NXKI
     Indication: Breast cancer
     Dosage: 5.4 MG/KG
     Dates: start: 20230818
  3. CALCIMAGON D3 UNO [Concomitant]
     Dosage: UNK
     Route: 048
     Dates: start: 202402

REACTIONS (1)
  - Osteonecrosis of external auditory canal [Unknown]

NARRATIVE: CASE EVENT DATE: 20240425
